FAERS Safety Report 18438309 (Version 1)
Quarter: 2020Q4

REPORT INFORMATION
  Report Type: Spontaneous
  Country: DE (occurrence: DE)
  Receive Date: 20201028
  Receipt Date: 20201028
  Transmission Date: 20210114
  Serious: Yes (Hospitalization, Other)
  Sender: FDA-Public Use
  Company Number: DE-ASTRAZENECA-2020SF38787

PATIENT
  Age: 56 Year
  Sex: Female

DRUGS (3)
  1. SYMBICORT [Suspect]
     Active Substance: BUDESONIDE\FORMOTEROL FUMARATE DIHYDRATE
     Dosage: 160/4.5 UG, TWO PUFFS TWICE DAILY
     Route: 055
  2. PREDNISOLONE. [Concomitant]
     Active Substance: PREDNISOLONE
     Indication: COUGH
     Dosage: 250 DOSAGES
  3. ATMADISC [Concomitant]
     Active Substance: FLUTICASONE PROPIONATE\SALMETEROL XINAFOATE
     Dosage: 250 DOSAGES

REACTIONS (7)
  - Respiratory failure [Unknown]
  - Haemoptysis [Unknown]
  - Cough [Unknown]
  - Asthma [Unknown]
  - Seasonal allergy [Unknown]
  - COVID-19 pneumonia [Unknown]
  - Drug hypersensitivity [Unknown]
